FAERS Safety Report 8255434 (Version 6)
Quarter: 2016Q1

REPORT INFORMATION
  Report Type: Report from Study
  Country: AR (occurrence: AR)
  Receive Date: 20111118
  Receipt Date: 20160211
  Transmission Date: 20160526
  Serious: Yes (Hospitalization, Other)
  Sender: FDA-Public Use
  Company Number: AR-BRISTOL-MYERS SQUIBB COMPANY-16222531

PATIENT
  Age: 53 Year
  Sex: Female

DRUGS (3)
  1. ABATACEPT [Suspect]
     Active Substance: ABATACEPT
     Indication: RHEUMATOID ARTHRITIS
     Dosage: LAST DOSE ON 23OCT11,2 VIALS OF 250MG  26SEP  27NOV12
     Route: 042
     Dates: start: 20080901
  2. METHOTREXATE [Concomitant]
     Active Substance: METHOTREXATE
     Indication: PRODUCT USED FOR UNKNOWN INDICATION
     Route: 065
  3. ASPIRIN. [Concomitant]
     Active Substance: ASPIRIN
     Indication: PRODUCT USED FOR UNKNOWN INDICATION
     Route: 065

REACTIONS (30)
  - Uterine disorder [Unknown]
  - Anxiety [Unknown]
  - Oral pain [Unknown]
  - Peripheral swelling [Unknown]
  - Thrombosis [Unknown]
  - Oral mucosal blistering [Unknown]
  - Tooth infection [Not Recovered/Not Resolved]
  - Osteonecrosis [Unknown]
  - Abdominal distension [Unknown]
  - Fatigue [Unknown]
  - Chest discomfort [Unknown]
  - Diarrhoea [Unknown]
  - Neurological symptom [Unknown]
  - Pruritus generalised [Unknown]
  - Hepatic cyst [Unknown]
  - Fungal infection [Unknown]
  - Dry eye [Unknown]
  - Pruritus [Unknown]
  - Infection [Unknown]
  - Headache [Unknown]
  - Amnesia [Unknown]
  - Pericardial effusion [Unknown]
  - Pulmonary fibrosis [Unknown]
  - Glaucoma [Unknown]
  - Eating disorder [Unknown]
  - Nasal dryness [Unknown]
  - Acne [Unknown]
  - Hypersensitivity [Unknown]
  - Vomiting [Unknown]
  - Fall [Unknown]

NARRATIVE: CASE EVENT DATE: 20121129
